FAERS Safety Report 7653436-X (Version None)
Quarter: 2011Q3

REPORT INFORMATION
  Report Type: 
  Country: None (occurrence: None)
  Receive Date: 20110803
  Receipt Date: 20110801
  Transmission Date: 20111222
  Serious: No
  Sender: FDA-Public Use
  Company Number: US-PFIZER INC-2011175357

PATIENT
  Sex: Female

DRUGS (1)
  1. NEURONTIN [Suspect]
     Indication: BACK PAIN
     Dosage: UNK

REACTIONS (4)
  - FEELING ABNORMAL [None]
  - PRURITUS [None]
  - RASH PAPULAR [None]
  - SOMNOLENCE [None]
